FAERS Safety Report 8478015-6 (Version None)
Quarter: 2012Q2

REPORT INFORMATION
  Report Type: 
  Country: None (occurrence: None)
  Receive Date: 20120629
  Receipt Date: 20120621
  Transmission Date: 20120825
  Serious: Yes (Hospitalization)
  Sender: FDA-Public Use
  Company Number: CA-SANOFI-AVENTIS-2012SA044080

PATIENT
  Age: 66 Year
  Sex: Male
  Weight: 84.7 kg

DRUGS (2)
  1. PREDNISONE [Suspect]
     Indication: PROSTATE CANCER METASTATIC
     Route: 048
     Dates: start: 20120514, end: 20120615
  2. CABAZITAXEL [Suspect]
     Indication: PROSTATE CANCER METASTATIC
     Route: 042
     Dates: start: 20120514, end: 20120514

REACTIONS (1)
  - SMALL INTESTINAL OBSTRUCTION [None]
